FAERS Safety Report 13496122 (Version 1)
Quarter: 2017Q2

REPORT INFORMATION
  Report Type: Spontaneous
  Country: CN (occurrence: CN)
  Receive Date: 20170428
  Receipt Date: 20170428
  Transmission Date: 20170830
  Serious: Yes (Hospitalization)
  Sender: FDA-Public Use
  Company Number: CN-ASTRAZENECA-2017SE44883

PATIENT
  Age: 11322 Day
  Sex: Female

DRUGS (1)
  1. MEPEM [Suspect]
     Active Substance: MEROPENEM
     Indication: PUERPERAL INFECTION
     Route: 042
     Dates: start: 20170127, end: 20170128

REACTIONS (4)
  - Hyperpyrexia [Recovered/Resolved]
  - Tachypnoea [Unknown]
  - Tachycardia [Unknown]
  - Chills [Unknown]

NARRATIVE: CASE EVENT DATE: 20170127
